FAERS Safety Report 23462498 (Version 1)
Quarter: 2024Q1

REPORT INFORMATION
  Report Type: Spontaneous
  Country: SE (occurrence: SE)
  Receive Date: 20240131
  Receipt Date: 20240131
  Transmission Date: 20240409
  Serious: Yes (Hospitalization)
  Sender: FDA-Public Use
  Company Number: None

PATIENT
  Age: 60 Year
  Sex: Female

DRUGS (5)
  1. MIRTAZAPINE [Suspect]
     Active Substance: MIRTAZAPINE
     Dosage: 10 MIRTAZAPINE.
     Dates: start: 20231211, end: 20231211
  2. CLOPIDOGREL [Suspect]
     Active Substance: CLOPIDOGREL BISULFATE
     Dosage: 10 CLOPIDOGREL
     Dates: start: 20231211, end: 20231211
  3. DULOXETINE HYDROCHLORIDE [Suspect]
     Active Substance: DULOXETINE HYDROCHLORIDE
     Dosage: 10 DULOXETINE
     Dates: start: 20231211, end: 20231211
  4. TRIMEPRAZINE [Suspect]
     Active Substance: TRIMEPRAZINE
     Dosage: UNCLEAR NUMBER OF ML
     Dates: start: 20231211, end: 20231211
  5. OXAZEPAM [Suspect]
     Active Substance: OXAZEPAM
     Dosage: 7-8 OXASCAND
     Dates: start: 20231211, end: 20231211

REACTIONS (8)
  - Toxicity to various agents [Not Recovered/Not Resolved]
  - Suicide attempt [Not Recovered/Not Resolved]
  - Hypochloraemia [Not Recovered/Not Resolved]
  - Intentional overdose [Not Recovered/Not Resolved]
  - Alcohol poisoning [Not Recovered/Not Resolved]
  - Hyponatraemia [Not Recovered/Not Resolved]
  - Seizure [Not Recovered/Not Resolved]
  - Loss of consciousness [Not Recovered/Not Resolved]

NARRATIVE: CASE EVENT DATE: 20231211
